FAERS Safety Report 10255602 (Version 1)
Quarter: 2014Q2

REPORT INFORMATION
  Report Type: Spontaneous
  Country: GB (occurrence: None)
  Receive Date: 20140620
  Receipt Date: 20140620
  Transmission Date: 20141212
  Serious: Yes (Other)
  Sender: FDA-Public Use
  Company Number: AUR-APL-2014-06477

PATIENT
  Age: 25 Year
  Sex: Male
  Weight: 59.2 kg

DRUGS (1)
  1. OLANZAPINE [Suspect]
     Indication: MENTAL DISORDER
     Dosage: 10 MG, ONCE A DAY, UNKNOWN
     Dates: start: 20140526

REACTIONS (6)
  - Somnolence [None]
  - Dyspnoea [None]
  - Mouth swelling [None]
  - Pharyngeal oedema [None]
  - Musculoskeletal stiffness [None]
  - Painful erection [None]
